FAERS Safety Report 15947195 (Version 1)
Quarter: 2019Q1

REPORT INFORMATION
  Report Type: Spontaneous
  Country: FR (occurrence: FR)
  Receive Date: 20190212
  Receipt Date: 20190212
  Transmission Date: 20190417
  Serious: Yes (Hospitalization)
  Sender: FDA-Public Use
  Company Number: FR-SA-2019SA033678

PATIENT
  Age: 41 Year
  Sex: Female
  Weight: 55 kg

DRUGS (3)
  1. DOXYLAMINE SUCCINATE. [Suspect]
     Active Substance: DOXYLAMINE SUCCINATE
     Indication: INTENTIONAL OVERDOSE
     Dosage: UNK UNK, UNK
     Route: 048
     Dates: start: 20181007, end: 20181007
  2. BROMAZEPAM [Suspect]
     Active Substance: BROMAZEPAM
     Indication: INTENTIONAL OVERDOSE
     Dosage: UNK UNK, UNK
     Route: 048
     Dates: start: 20181007, end: 20181007
  3. BACLOFENE [Concomitant]
     Active Substance: BACLOFEN
     Dosage: UNK, UNK

REACTIONS (5)
  - Somnolence [Recovered/Resolved]
  - Mydriasis [Recovered/Resolved]
  - Confusional state [Recovered/Resolved]
  - Agitation [Recovered/Resolved]
  - Intentional overdose [Unknown]

NARRATIVE: CASE EVENT DATE: 20181007
